FAERS Safety Report 13266302 (Version 1)
Quarter: 2017Q1

REPORT INFORMATION
  Report Type: Spontaneous
  Country: US (occurrence: US)
  Receive Date: 20170223
  Receipt Date: 20170223
  Transmission Date: 20170428
  Serious: No
  Sender: FDA-Public Use
  Company Number: US-009507513-1702USA003582

PATIENT
  Age: 25 Year
  Sex: Female
  Weight: 97.51 kg

DRUGS (1)
  1. NEXPLANON [Suspect]
     Active Substance: ETONOGESTREL
     Indication: CONTRACEPTION
     Dosage: 1 DF, 1 IMPLANT EVERY 3 YEARS
     Route: 059
     Dates: start: 20161209

REACTIONS (6)
  - Vaginal haemorrhage [Unknown]
  - Acne [Unknown]
  - Back pain [Unknown]
  - Menstruation irregular [Unknown]
  - Abdominal pain [Unknown]
  - Menstrual disorder [Unknown]

NARRATIVE: CASE EVENT DATE: 201612
